FAERS Safety Report 9001031 (Version 1)
Quarter: 2013Q1

REPORT INFORMATION
  Report Type: Spontaneous
  Country: US (occurrence: None)
  Receive Date: 20130103
  Receipt Date: 20130103
  Transmission Date: 20140127
  Serious: No
  Sender: FDA-Public Use
  Company Number: None

PATIENT
  Age: 30 Year
  Sex: Female
  Weight: 66.68 kg

DRUGS (1)
  1. KLONOPIN [Suspect]
     Indication: CONVULSION

REACTIONS (3)
  - Product substitution issue [None]
  - Vomiting [None]
  - Convulsion [None]
